FAERS Safety Report 9374516 (Version 1)
Quarter: 2013Q2

REPORT INFORMATION
  Report Type: Spontaneous
  Country: DE (occurrence: DE)
  Receive Date: 20130628
  Receipt Date: 20130628
  Transmission Date: 20140414
  Serious: Yes (Other)
  Sender: FDA-Public Use
  Company Number: DE-JNJFOC-20130616473

PATIENT
  Age: 58 Year
  Sex: Male
  Weight: 93 kg

DRUGS (4)
  1. CETIRIZINE HYDROCHLORIDE [Suspect]
     Route: 048
  2. CETIRIZINE HYDROCHLORIDE [Suspect]
     Indication: SEASONAL ALLERGY
     Route: 048
     Dates: start: 20130414, end: 20130428
  3. BISOPROLOL [Concomitant]
     Route: 048
  4. CODIOVAN [Concomitant]
     Route: 048

REACTIONS (1)
  - Hypertensive crisis [Not Recovered/Not Resolved]
